FAERS Safety Report 6806752-5 (Version None)
Quarter: 2010Q2

REPORT INFORMATION
  Report Type: 
  Country: None (occurrence: None)
  Receive Date: 20100629
  Receipt Date: 20080513
  Transmission Date: 20101027
  Serious: No
  Sender: FDA-Public Use
  Company Number: US-PFIZER INC-2008035967

PATIENT
  Sex: Male
  Weight: 90.9 kg

DRUGS (13)
  1. VIAGRA [Suspect]
     Indication: ERECTILE DYSFUNCTION
     Route: 048
     Dates: start: 20060101
  2. CARDIOVASCULAR SYSTEM DRUGS [Concomitant]
     Indication: BLOOD PRESSURE
  3. CHOLESTEROL- AND TRIGLYCERIDE REDUCERS [Concomitant]
  4. ACETYLSALICYLIC ACID [Concomitant]
  5. VITAMINS [Concomitant]
  6. FISH OIL [Concomitant]
  7. CALCIUM CARBONATE [Concomitant]
  8. MULTI-VITAMINS [Concomitant]
  9. NIACIN [Concomitant]
  10. HYZAAR [Concomitant]
  11. DIURETICS [Concomitant]
  12. ZETIA [Concomitant]
  13. CRESTOR [Concomitant]

REACTIONS (2)
  - DRUG INEFFECTIVE [None]
  - ERECTILE DYSFUNCTION [None]
